FAERS Safety Report 17871393 (Version 2)
Quarter: 2020Q4

REPORT INFORMATION
  Report Type: Report from Study
  Country: IN (occurrence: IN)
  Receive Date: 20200608
  Receipt Date: 20201015
  Transmission Date: 20210113
  Serious: Yes (Death, Hospitalization, Other)
  Sender: FDA-Public Use
  Company Number: NVSC2020IN158544

PATIENT
  Age: 19 Year
  Sex: Female
  Weight: 35 kg

DRUGS (1)
  1. REVOLADE [Suspect]
     Active Substance: ELTROMBOPAG
     Indication: APLASTIC ANAEMIA
     Dosage: 100 MG, QD
     Route: 048
     Dates: start: 20200511, end: 20200611

REACTIONS (6)
  - Haemoglobin decreased [Unknown]
  - Haemorrhage urinary tract [Unknown]
  - Disease progression [Fatal]
  - Platelet count decreased [Unknown]
  - Pyrexia [Unknown]
  - Abdominal pain upper [Unknown]

NARRATIVE: CASE EVENT DATE: 202005
